FAERS Safety Report 8191810-6 (Version None)
Quarter: 2012Q1

REPORT INFORMATION
  Report Type: 
  Country: None (occurrence: None)
  Receive Date: 20120307
  Receipt Date: 20120302
  Transmission Date: 20120608
  Serious: Yes (Other)
  Sender: FDA-Public Use
  Company Number: CA-ABBOTT-12P-028-0910316-00

PATIENT
  Sex: Female
  Weight: 70.37 kg

DRUGS (10)
  1. HUMIRA [Suspect]
     Indication: CROHN'S DISEASE
     Route: 058
     Dates: start: 20100624, end: 20110401
  2. HUMIRA [Suspect]
  3. FLAGYL [Concomitant]
     Indication: CROHN'S DISEASE
  4. CITALOPRAM HYDROBROMIDE [Concomitant]
     Indication: PRODUCT USED FOR UNKNOWN INDICATION
  5. AMOXIL [Concomitant]
     Indication: PRODUCT USED FOR UNKNOWN INDICATION
  6. CIPRO [Concomitant]
     Indication: PRODUCT USED FOR UNKNOWN INDICATION
  7. HUMIRA [Suspect]
     Dates: start: 20110901, end: 20120220
  8. IMURAN [Concomitant]
     Indication: CROHN'S DISEASE
     Route: 048
     Dates: start: 20090601
  9. IMURAN [Concomitant]
     Route: 048
     Dates: start: 20101001
  10. HUMIRA [Suspect]
     Dates: start: 20110401, end: 20110901

REACTIONS (14)
  - EYE PAIN [None]
  - VOMITING [None]
  - RASH [None]
  - EAR PAIN [None]
  - ADENOIDAL HYPERTROPHY [None]
  - PAIN [None]
  - HYPOPHAGIA [None]
  - PHARYNGEAL HAEMORRHAGE [None]
  - DRUG INEFFECTIVE [None]
  - FLUID INTAKE REDUCED [None]
  - PHARYNGITIS STREPTOCOCCAL [None]
  - TONSILLAR HYPERTROPHY [None]
  - OROPHARYNGEAL PAIN [None]
  - ABDOMINAL PAIN UPPER [None]
